FAERS Safety Report 7085792-8 (Version None)
Quarter: 2010Q4

REPORT INFORMATION
  Report Type: 
  Country: None (occurrence: None)
  Receive Date: 20101001
  Receipt Date: 20100803
  Transmission Date: 20110411
  Serious: No
  Sender: FDA-Public Use
  Company Number: 1000015527

PATIENT
  Age: 76 Year
  Sex: Female
  Weight: 72.73 kg

DRUGS (2)
  1. BYSTOLIC [Suspect]
     Indication: HYPERTENSION
     Dosage: 5 MG (5 MG, 1 IN 1 D), ORAL
     Route: 048
     Dates: start: 20090520, end: 20090527
  2. BYSTOLIC [Suspect]
     Indication: HYPERTENSION
     Dosage: 5 MG (5 MG, 1 IN 1 D), ORAL
     Route: 048
     Dates: start: 20090604, end: 20090817

REACTIONS (5)
  - EAR CONGESTION [None]
  - GASTROINTESTINAL PAIN [None]
  - OROPHARYNGEAL PAIN [None]
  - PRURITUS [None]
  - URTICARIA [None]
